FAERS Safety Report 24047326 (Version 1)
Quarter: 2024Q3

REPORT INFORMATION
  Report Type: Spontaneous
  Country: BR (occurrence: BR)
  Receive Date: 20240703
  Receipt Date: 20240703
  Transmission Date: 20241017
  Serious: Yes (Hospitalization, Other)
  Sender: GRANULES INDIA
  Company Number: BR-GRANULES-BR-2024GRALIT00245

PATIENT
  Age: 65 Year
  Sex: Female

DRUGS (2)
  1. LAMOTRIGINE [Suspect]
     Active Substance: LAMOTRIGINE
     Indication: Generalised tonic-clonic seizure
     Route: 065
     Dates: start: 2021
  2. LAMOTRIGINE [Suspect]
     Active Substance: LAMOTRIGINE
     Route: 065
     Dates: start: 2021, end: 2021

REACTIONS (3)
  - Acute generalised exanthematous pustulosis [Recovering/Resolving]
  - Drug eruption [Recovering/Resolving]
  - Drug ineffective [Unknown]

NARRATIVE: CASE EVENT DATE: 20210101
